FAERS Safety Report 13004659 (Version 4)
Quarter: 2017Q1

REPORT INFORMATION
  Report Type: Spontaneous
  Country: US (occurrence: US)
  Receive Date: 20161207
  Receipt Date: 20170330
  Transmission Date: 20170428
  Serious: Yes (Other)
  Sender: FDA-Public Use
  Company Number: US-JNJFOC-20161205049

PATIENT
  Sex: Female

DRUGS (7)
  1. TRAMADOL HYDROCHLORIDE. [Concomitant]
     Active Substance: TRAMADOL HYDROCHLORIDE
     Indication: PAIN MANAGEMENT
     Route: 065
     Dates: start: 2007
  2. BUTALBITAL AND ACETAMINOPHEN [Concomitant]
     Active Substance: ACETAMINOPHEN\BUTALBITAL
     Indication: PAIN MANAGEMENT
     Route: 065
     Dates: start: 2007
  3. VOLTAREN [Concomitant]
     Active Substance: DICLOFENAC SODIUM
     Indication: PAIN
     Route: 065
     Dates: start: 2007
  4. CITALOPRAM [Concomitant]
     Active Substance: CITALOPRAM HYDROBROMIDE
     Indication: DEPRESSION
     Route: 065
     Dates: start: 2007
  5. LEVAQUIN [Suspect]
     Active Substance: LEVOFLOXACIN
     Indication: INFECTION
     Route: 048
     Dates: start: 20070323, end: 20070402
  6. LIDODERM [Concomitant]
     Active Substance: LIDOCAINE
     Indication: PAIN MANAGEMENT
     Route: 065
     Dates: start: 2007
  7. AVELOX [Suspect]
     Active Substance: MOXIFLOXACIN HYDROCHLORIDE
     Indication: INFECTION
     Route: 065
     Dates: start: 20100712, end: 20100717

REACTIONS (1)
  - Neuropathy peripheral [Not Recovered/Not Resolved]

NARRATIVE: CASE EVENT DATE: 2007
